FAERS Safety Report 12114302 (Version 6)
Quarter: 2016Q2

REPORT INFORMATION
  Report Type: Spontaneous
  Country: US (occurrence: US)
  Receive Date: 20160225
  Receipt Date: 20160401
  Transmission Date: 20160815
  Serious: Yes (Other)
  Sender: FDA-Public Use
  Company Number: US-WATSON-2016-04262

PATIENT
  Sex: Female

DRUGS (6)
  1. HYDROCORTISONE (AMALLC) [Suspect]
     Active Substance: HYDROCORTISONE
     Indication: HORMONE REPLACEMENT THERAPY
     Dosage: 60 MG IN THE MORNING AND 40 MG IN THE EVENING
     Route: 048
  2. TRIAMCINOLONE ACETONIDE (WATSON LABORATORIES) [Suspect]
     Active Substance: TRIAMCINOLONE ACETONIDE
     Indication: HEADACHE
  3. DEXAMETHASONE (WATSON LABORATORIES) [Suspect]
     Active Substance: DEXAMETHASONE
     Indication: HEADACHE
  4. DEHYDROEPIANDROSTERONE [Concomitant]
     Active Substance: PRASTERONE
     Indication: HORMONE REPLACEMENT THERAPY
     Dosage: 25 MG, DAILY
     Route: 065
  5. DEXAMETHASONE (WATSON LABORATORIES) [Suspect]
     Active Substance: DEXAMETHASONE
     Indication: NECK PAIN
     Dosage: 8 MG, SINGLE
     Route: 008
  6. TRIAMCINOLONE ACETONIDE (WATSON LABORATORIES) [Suspect]
     Active Substance: TRIAMCINOLONE ACETONIDE
     Indication: NECK PAIN
     Dosage: 10 MG, SINGLE
     Route: 008

REACTIONS (7)
  - Cushingoid [Recovering/Resolving]
  - Weight increased [Recovering/Resolving]
  - Increased appetite [Recovering/Resolving]
  - Agitation [Recovering/Resolving]
  - Insomnia [Recovering/Resolving]
  - Swelling face [Recovering/Resolving]
  - Hypothalamic pituitary adrenal axis suppression [Recovering/Resolving]
